FAERS Safety Report 18587247 (Version 1)
Quarter: 2020Q4

REPORT INFORMATION
  Report Type: Spontaneous
  Country: US (occurrence: US)
  Receive Date: 20201207
  Receipt Date: 20201207
  Transmission Date: 20210114
  Serious: No
  Sender: FDA-Public Use
  Company Number: US-LANNETT COMPANY, INC.-US-2019LAN001187

PATIENT
  Age: 42 Year
  Sex: Female

DRUGS (4)
  1. ZIDOVUDINE. [Suspect]
     Active Substance: ZIDOVUDINE
     Dosage: 2 UNK, QD, COURSE 2, 3RD TRIMESTER, WEEK 33 OF GESTATIONAL PERIOD
     Route: 042
  2. LAMIVUDINE. [Suspect]
     Active Substance: LAMIVUDINE
     Indication: PRODUCT USED FOR UNKNOWN INDICATION
     Dosage: 1 UNK, QD, COURSE 1, 1ST TRIMESTER, BEGAN WEEK 0 OF GESTATIONAL PERIOD AND ONGOING AT DELIVERY
     Route: 048
  3. ZIDOVUDINE. [Suspect]
     Active Substance: ZIDOVUDINE
     Indication: PRODUCT USED FOR UNKNOWN INDICATION
     Dosage: 1 UNK, QD, COURSE 1, 1ST TRIMESTER, BEGAN WEEK 0 OF GESTATIONAL PERIOD AND ONGOING AT DELIVERY
     Route: 048
  4. NEVIRAPINE. [Suspect]
     Active Substance: NEVIRAPINE
     Indication: PRODUCT USED FOR UNKNOWN INDICATION
     Dosage: 1 UNK, QD, COURSE 1, 1ST TRIMESTER, BEGAN WEEK 0 OF GESTATIONAL PERIOD AND ONGOING AT DELIVERY
     Route: 048

REACTIONS (2)
  - Maternal exposure during pregnancy [Unknown]
  - No adverse event [Unknown]
